FAERS Safety Report 25120880 (Version 1)
Quarter: 2025Q1

REPORT INFORMATION
  Report Type: Spontaneous
  Country: US (occurrence: US)
  Receive Date: 20250325
  Receipt Date: 20250325
  Transmission Date: 20250409
  Serious: No
  Sender: JOHNSON AND JOHNSON
  Company Number: US-JNJFOC-20250329905

PATIENT

DRUGS (1)
  1. RYBREVANT [Suspect]
     Active Substance: AMIVANTAMAB-VMJW
     Indication: Product used for unknown indication

REACTIONS (6)
  - Product dose omission issue [Unknown]
  - General symptom [Unknown]
  - Productive cough [Unknown]
  - Fatigue [Unknown]
  - Decreased appetite [Unknown]
  - Increased need for sleep [Unknown]

NARRATIVE: CASE EVENT DATE: 20250101
